FAERS Safety Report 5293396-2 (Version None)
Quarter: 2007Q2

REPORT INFORMATION
  Report Type: 
  Country: None (occurrence: None)
  Receive Date: 20070411
  Receipt Date: 20070402
  Transmission Date: 20071010
  Serious: Yes (Life-Threatening, Hospitalization)
  Sender: FDA-Public Use
  Company Number: JP-PURDUE-MAG_2007_0000519

PATIENT
  Age: 49 Year
  Sex: Female

DRUGS (13)
  1. OXYCODONE HCL [Suspect]
     Indication: CANCER PAIN
     Dosage: 5 MG, BID
     Route: 048
     Dates: start: 20051201, end: 20060217
  2. RINDERON [Concomitant]
     Indication: BREAST CANCER
     Dosage: 2 MG, DAILY
     Route: 048
     Dates: start: 20051207, end: 20060217
  3. RINDERON [Concomitant]
     Dosage: 8 MG, DAILY
     Route: 065
     Dates: start: 20051203, end: 20051206
  4. NOVAMIN [Concomitant]
     Indication: PROPHYLAXIS OF NAUSEA AND VOMITING
     Dosage: 30 MG, DAILY
     Route: 048
     Dates: start: 20051203, end: 20051204
  5. NOVAMIN [Concomitant]
     Dosage: 15 MG, DAILY
     Route: 048
     Dates: start: 20051201, end: 20051202
  6. HYPEN [Concomitant]
     Indication: CANCER PAIN
     Dosage: 400 MG, DAILY
     Route: 048
     Dates: start: 20051202, end: 20060202
  7. DRAMAMINE [Concomitant]
     Indication: BREAST CANCER
     Dosage: 150 MG, DAILY
     Route: 048
     Dates: start: 20051218, end: 20060114
  8. HALOPERIDOL [Concomitant]
     Indication: BREAST CANCER
     Dosage: 5 MG, DAILY
     Route: 065
     Dates: start: 20051203, end: 20051206
  9. MAGNESIUM OXIDE [Concomitant]
     Indication: BREAST CANCER
     Dosage: 1.5 GRAM, DAILY
     Route: 048
     Dates: start: 20051201, end: 20060217
  10. MERCAZOLE [Concomitant]
     Indication: BREAST CANCER
     Dosage: 5 MG, DAILY
     Route: 048
     Dates: start: 20051201, end: 20060217
  11. AMLODIN [Concomitant]
     Indication: BLOOD PRESSURE INCREASED
     Dosage: 2.5 MG, DAILY
     Route: 048
     Dates: start: 20051207, end: 20060217
  12. ARIMIDEX [Concomitant]
     Indication: BREAST CANCER
     Dosage: 1 MG, DAILY
     Route: 048
     Dates: start: 20060104, end: 20060202
  13. XELODA [Concomitant]
     Indication: BREAST CANCER
     Dosage: 1200 MG, DAILY
     Route: 048
     Dates: start: 20051206, end: 20060202

REACTIONS (2)
  - DEHYDRATION [None]
  - HEPATIC FUNCTION ABNORMAL [None]
